FAERS Safety Report 22078519 (Version 1)
Quarter: 2023Q1

REPORT INFORMATION
  Report Type: Spontaneous
  Country: US (occurrence: None)
  Receive Date: 20230308
  Receipt Date: 20230308
  Transmission Date: 20230417
  Serious: Yes (Disabling)
  Sender: FDA-Public Use
  Company Number: None

PATIENT
  Age: 48 Year
  Sex: Female
  Weight: 69.75 kg

DRUGS (11)
  1. TIROSINT [Suspect]
     Active Substance: LEVOTHYROXINE SODIUM
     Indication: Autoimmune thyroiditis
     Dosage: OTHER QUANTITY : 2 DROP(S);?FREQUENCY : TWICE A DAY;?
     Route: 060
     Dates: start: 20200301
  2. TIROSINT [Suspect]
     Active Substance: LEVOTHYROXINE SODIUM
     Indication: Hypothyroidism
  3. GABAPENTIN [Concomitant]
     Active Substance: GABAPENTIN
  4. HYDROCHLOROTHIAZIDE [Concomitant]
     Active Substance: HYDROCHLOROTHIAZIDE
  5. LIOTHYRONINE [Concomitant]
     Active Substance: LIOTHYRONINE
  6. LEXAPRO [Concomitant]
     Active Substance: ESCITALOPRAM OXALATE
  7. VITAMIN D NOS [Concomitant]
     Active Substance: VITAMIN D NOS
  8. FAMOTIDINE [Concomitant]
     Active Substance: FAMOTIDINE
  9. MIRENA [Concomitant]
     Active Substance: LEVONORGESTREL
  10. CABERGOLINE [Concomitant]
     Active Substance: CABERGOLINE
  11. TYLENOL [Concomitant]
     Active Substance: ACETAMINOPHEN

REACTIONS (10)
  - Fatigue [None]
  - Depression [None]
  - Arthralgia [None]
  - Myalgia [None]
  - Decreased appetite [None]
  - Headache [None]
  - Feeling abnormal [None]
  - Alopecia [None]
  - Neuropathy peripheral [None]
  - Recalled product administered [None]

NARRATIVE: CASE EVENT DATE: 20230115
